FAERS Safety Report 9189948 (Version 1)
Quarter: 2013Q1

REPORT INFORMATION
  Report Type: Spontaneous
  Country: US (occurrence: US)
  Receive Date: 20130326
  Receipt Date: 20130326
  Transmission Date: 20140127
  Serious: No
  Sender: FDA-Public Use
  Company Number: US-PFIZER INC-2013096241

PATIENT
  Age: 80 Year
  Sex: Male
  Weight: 86.17 kg

DRUGS (1)
  1. SUTENT [Suspect]
     Indication: RENAL CANCER
     Dosage: 50 MG, ALTERNATE DAY
     Dates: start: 20130212, end: 20130306

REACTIONS (3)
  - Disease progression [Unknown]
  - Renal cancer [Unknown]
  - Blood creatinine increased [Unknown]
